FAERS Safety Report 8052036-X (Version None)
Quarter: 2012Q1

REPORT INFORMATION
  Report Type: 
  Country: None (occurrence: None)
  Receive Date: 20120118
  Receipt Date: 20120109
  Transmission Date: 20120608
  Serious: Yes (Hospitalization)
  Sender: FDA-Public Use
  Company Number: US-BAYER-2010-001432

PATIENT
  Age: 23 Year
  Sex: Female
  Weight: 59 kg

DRUGS (7)
  1. FLONASE [Concomitant]
     Dosage: 50 ?G, QD (DAILY)
     Dates: start: 20070810
  2. CRANTEX LA [Concomitant]
     Dosage: UNK UNK, BID (TWICE DAILY)
     Route: 048
     Dates: start: 20070810
  3. IBUPROFEN [Concomitant]
     Indication: PAIN
     Dosage: 800 MG, TID (THREE TIMES DAILY AS NEEDED)
     Route: 048
     Dates: start: 20070824
  4. YAZ [Suspect]
  5. VITAMIN AND MINERAL PRENATAL SUPPLEMENT W/ FOLIC ACID CAP [Concomitant]
     Dosage: UNK UNK, QD (DAILY)
     Route: 048
     Dates: start: 20071024
  6. YASMIN [Suspect]
     Dosage: UNK
     Dates: start: 20060101, end: 20070101
  7. CETIRIZINE HCL [Concomitant]
     Dosage: 10 MG, QD (DAILY)
     Route: 048
     Dates: start: 20070810

REACTIONS (1)
  - DEEP VEIN THROMBOSIS [None]
